FAERS Safety Report 6232831-X (Version None)
Quarter: 2009Q2

REPORT INFORMATION
  Report Type: 
  Country: None (occurrence: None)
  Receive Date: 20090617
  Receipt Date: 20080225
  Transmission Date: 20091009
  Serious: No
  Sender: FDA-Public Use
  Company Number: US-ASTRAZENECA-2008UW03997

PATIENT
  Age: 63 Year
  Sex: Female

DRUGS (4)
  1. FASLODEX [Suspect]
  2. BLOOD PRESSURE MEDICINE [Concomitant]
  3. IRON [Concomitant]
  4. VITAMINS [Concomitant]

REACTIONS (2)
  - ORAL PAIN [None]
  - OROPHARYNGEAL BLISTERING [None]
